FAERS Safety Report 25599084 (Version 1)
Quarter: 2025Q3

REPORT INFORMATION
  Report Type: Other
  Country: TR (occurrence: TR)
  Receive Date: 20250724
  Receipt Date: 20250724
  Transmission Date: 20251021
  Serious: Yes (Other)
  Sender: BIONPHARMA INC.
  Company Number: TR-Bion-015108

PATIENT
  Age: 10 Year

DRUGS (2)
  1. IBUPROFEN [Suspect]
     Active Substance: IBUPROFEN
     Indication: Product used for unknown indication
  2. ASPIRIN [Concomitant]
     Active Substance: ASPIRIN
     Indication: Product used for unknown indication

REACTIONS (4)
  - Angioedema [Unknown]
  - Urticaria [Unknown]
  - Cross sensitivity reaction [Unknown]
  - Dyspnoea [Unknown]
